FAERS Safety Report 7785779-3 (Version None)
Quarter: 2011Q3

REPORT INFORMATION
  Report Type: 
  Country: None (occurrence: None)
  Receive Date: 20110929
  Receipt Date: 20110925
  Transmission Date: 20111222
  Serious: Yes (Hospitalization)
  Sender: FDA-Public Use
  Company Number: IL-BRISTOL-MYERS SQUIBB COMPANY-16017857

PATIENT
  Age: 75 Year
  Sex: Male

DRUGS (9)
  1. APIDRA [Suspect]
     Indication: TYPE 2 DIABETES MELLITUS
  2. COUMADIN [Suspect]
     Dosage: 11AUG-11AUG11,12AUG-14AUG11,15AUG11-22SEP11.
     Dates: start: 20110811
  3. PROSCAR [Concomitant]
     Dosage: 11AUG-14AUG11,15AUG-17AUG11,18AUG-20AUG11,21AUG11-ONG.
     Dates: start: 20110811
  4. METFORMIN HCL [Suspect]
     Indication: TYPE 2 DIABETES MELLITUS
  5. BLINDED: SAXAGLIPTIN [Suspect]
     Indication: TYPE 2 DIABETES MELLITUS
     Dates: start: 20110220
  6. ASPIRIN [Concomitant]
     Dosage: 1 DF = GREATTER THAN 100MG,24MAY11 EQUAL TO OR LESSER THAN 100MG
     Dates: start: 20110220
  7. MIDAZOLAM HCL [Concomitant]
     Dates: start: 20110811, end: 20110811
  8. BLINDED: PLACEBO [Suspect]
     Indication: TYPE 2 DIABETES MELLITUS
     Dates: start: 20110220
  9. LANTUS [Suspect]
     Indication: TYPE 2 DIABETES MELLITUS

REACTIONS (3)
  - CARDIAC TAMPONADE [None]
  - CHEST PAIN [None]
  - RENAL FAILURE ACUTE [None]
